FAERS Safety Report 8990698 (Version 4)
Quarter: 2014Q1

REPORT INFORMATION
  Report Type: Report from Study
  Country: KR (occurrence: KR)
  Receive Date: 20121228
  Receipt Date: 20140218
  Transmission Date: 20141002
  Serious: Yes (Death, Life-Threatening, Hospitalization)
  Sender: FDA-Public Use
  Company Number: KR-SANOFI-AVENTIS-2012SA093653

PATIENT
  Age: 65 Year
  Sex: Male
  Weight: 60.2 kg

DRUGS (10)
  1. DOCETAXEL [Suspect]
     Indication: NON-SMALL CELL LUNG CANCER STAGE IV
     Route: 041
     Dates: start: 20120821, end: 20121106
  2. BLINDED THERAPY [Suspect]
     Indication: NON-SMALL CELL LUNG CANCER STAGE IV
     Route: 042
     Dates: start: 20120821, end: 20121106
  3. BENPROPERINE [Concomitant]
     Dates: start: 20120426, end: 20121108
  4. ACETYLCYSTEINE [Concomitant]
     Dates: start: 20120112, end: 20121108
  5. SILYMARIN [Concomitant]
     Dates: start: 20111212, end: 20121108
  6. OXYCODONE [Concomitant]
     Dates: start: 20120903, end: 20121108
  7. FENOTEROL [Concomitant]
     Dates: start: 20120912, end: 20121108
  8. BENZYDAMINE [Concomitant]
     Dates: start: 20120830, end: 20121108
  9. LEVODROPROPIZINE [Concomitant]
     Dates: start: 20120920, end: 20121108
  10. CODEINE [Concomitant]
     Dates: start: 20120920, end: 20121108

REACTIONS (3)
  - Pneumonitis [Fatal]
  - Neutrophil count decreased [Recovered/Resolved]
  - Aspiration [Unknown]
